FAERS Safety Report 11250480 (Version 1)
Quarter: 2015Q3

REPORT INFORMATION
  Report Type: Spontaneous
  Country: US (occurrence: US)
  Receive Date: 20150708
  Receipt Date: 20150708
  Transmission Date: 20151125
  Serious: No
  Sender: FDA-Public Use
  Company Number: US-ELI_LILLY_AND_COMPANY-US201101000125

PATIENT
  Sex: Female

DRUGS (2)
  1. OXYGEN. [Concomitant]
     Active Substance: OXYGEN
  2. GEMZAR [Suspect]
     Active Substance: GEMCITABINE HYDROCHLORIDE
     Indication: PANCREATIC CARCINOMA
     Dates: start: 201007

REACTIONS (6)
  - Feeling jittery [Unknown]
  - Asthenia [Unknown]
  - Constipation [Recovered/Resolved]
  - Blood glucose increased [Unknown]
  - Dyspnoea [Recovering/Resolving]
  - Diarrhoea [Unknown]
